FAERS Safety Report 8843251 (Version 2)
Quarter: 2012Q4

REPORT INFORMATION
  Report Type: 
  Country: FR (occurrence: FR)
  Receive Date: 20121016
  Receipt Date: 20121114
  Transmission Date: 20130627
  Serious: Yes (Hospitalization)
  Sender: FDA-Public Use
  Company Number: PHHY2012FR088710

PATIENT
  Age: 69 Year
  Sex: Male

DRUGS (9)
  1. LERCANIDIPINE [Concomitant]
  2. ATORVASTATIN [Concomitant]
  3. OXAZEPAM [Concomitant]
  4. RISPERIDONE [Concomitant]
  5. GALANTAMINE [Concomitant]
  6. ZOPICLONE [Concomitant]
  7. MIRTAZAPINE [Concomitant]
  8. ASPIRIN [Concomitant]
  9. OMEPRAZOLE [Suspect]

REACTIONS (4)
  - Hypocalcaemia [Recovering/Resolving]
  - Hyperthermia [Recovering/Resolving]
  - Hypomagnesaemia [Recovered/Resolved]
  - Abdominal pain [Recovering/Resolving]
